FAERS Safety Report 16345998 (Version 1)
Quarter: 2019Q2

REPORT INFORMATION
  Report Type: Report from Study
  Country: US (occurrence: US)
  Receive Date: 20190523
  Receipt Date: 20190523
  Transmission Date: 20190711
  Serious: Yes (Hospitalization)
  Sender: FDA-Public Use
  Company Number: US-ROCHE-2318746

PATIENT
  Age: 38 Year
  Sex: Female
  Weight: 61.29 kg

DRUGS (4)
  1. OCREVUS [Suspect]
     Active Substance: OCRELIZUMAB
     Indication: OFF LABEL USE
  2. RITUXAN [Suspect]
     Active Substance: RITUXIMAB
     Indication: MULTIPLE SCLEROSIS
     Dosage: ONGOING: NO
     Route: 065
     Dates: start: 20171101
  3. OCREVUS [Suspect]
     Active Substance: OCRELIZUMAB
     Indication: PRIMARY PROGRESSIVE MULTIPLE SCLEROSIS
     Dosage: ONGOING: YES
     Route: 065
     Dates: start: 201801
  4. RITUXAN [Suspect]
     Active Substance: RITUXIMAB
     Indication: OFF LABEL USE

REACTIONS (5)
  - Blood potassium abnormal [Not Recovered/Not Resolved]
  - Intentional product use issue [Unknown]
  - Heart rate increased [Not Recovered/Not Resolved]
  - Off label use [Unknown]
  - Clostridium difficile infection [Not Recovered/Not Resolved]

NARRATIVE: CASE EVENT DATE: 201711
